FAERS Safety Report 9375468 (Version 1)
Quarter: 2013Q2

REPORT INFORMATION
  Report Type: Spontaneous
  Country: FR (occurrence: FR)
  Receive Date: 20130628
  Receipt Date: 20130628
  Transmission Date: 20140414
  Serious: Yes (Hospitalization, Other)
  Sender: FDA-Public Use
  Company Number: FR-GLAXOSMITHKLINE-B0903160A

PATIENT
  Age: 86 Year
  Sex: Male

DRUGS (8)
  1. OMACOR [Suspect]
     Indication: PRODUCT USED FOR UNKNOWN INDICATION
     Dosage: 1000MG PER DAY
     Route: 048
     Dates: end: 20130401
  2. SITAGLIPTIN PHOSPHATE [Suspect]
     Indication: PRODUCT USED FOR UNKNOWN INDICATION
     Dosage: 100MG PER DAY
     Route: 048
     Dates: end: 20130401
  3. LASIX [Suspect]
     Indication: PRODUCT USED FOR UNKNOWN INDICATION
     Dosage: 20MG PER DAY
     Route: 048
     Dates: end: 20130401
  4. STAGID [Suspect]
     Dosage: 700MG PER DAY
     Route: 048
     Dates: end: 20130401
  5. CARDENSIEL [Concomitant]
     Dosage: 5MG PER DAY
     Route: 048
  6. CREON [Concomitant]
     Route: 048
  7. INEXIUM [Concomitant]
     Dosage: 20MG PER DAY
     Route: 048
  8. KARDEGIC [Concomitant]
     Dosage: 75MG PER DAY
     Route: 048

REACTIONS (3)
  - Pancreatitis acute [Recovered/Resolved]
  - Lipase increased [Recovered/Resolved]
  - Renal failure acute [Recovered/Resolved]
